FAERS Safety Report 26151183 (Version 1)
Quarter: 2025Q4

REPORT INFORMATION
  Report Type: Report from Study
  Country: US (occurrence: US)
  Receive Date: 20251212
  Receipt Date: 20251212
  Transmission Date: 20260117
  Serious: Yes (Death)
  Sender: PFIZER
  Company Number: US-PFIZER INC-202500120821

PATIENT
  Age: 86 Year
  Sex: Male
  Weight: 65.288 kg

DRUGS (2)
  1. TUKYSA [Suspect]
     Active Substance: TUCATINIB
     Indication: Breast cancer male
     Dosage: 300MG BY MOUTH TWICE DAILY
     Route: 048
     Dates: start: 20250322
  2. TUKYSA [Suspect]
     Active Substance: TUCATINIB
     Dosage: 150 MG, 2X/DAY

REACTIONS (5)
  - Death [Fatal]
  - Urticaria [Recovering/Resolving]
  - Pruritus [Recovered/Resolved]
  - Skin discolouration [Recovering/Resolving]
  - Dry eye [Not Recovered/Not Resolved]
